FAERS Safety Report 9342524 (Version 1)
Quarter: 2013Q2

REPORT INFORMATION
  Report Type: Spontaneous
  Country: BR (occurrence: BR)
  Receive Date: 20130611
  Receipt Date: 20130611
  Transmission Date: 20140414
  Serious: Yes (Death, Other)
  Sender: FDA-Public Use
  Company Number: BR-PFIZER INC-2013126532

PATIENT
  Age: 73 Year
  Sex: Female

DRUGS (3)
  1. SUTENT [Suspect]
     Indication: RENAL CELL CARCINOMA
     Dosage: 50 MG, 1X/DAY, CYCLIC (CYCLE 4X2)
     Route: 048
     Dates: start: 20130306, end: 20130426
  2. PURAN T4 [Concomitant]
     Indication: THYROID DISORDER
     Dosage: 1 TABLET (50 MG), 1X/DAY
  3. LOSARTAN [Concomitant]
     Indication: HYPERTENSION
     Dosage: 2 TABLETS (50MG) A DAY

REACTIONS (11)
  - Death [Fatal]
  - Blood pressure increased [Unknown]
  - Hypokinesia [Unknown]
  - Aphthous stomatitis [Unknown]
  - Constipation [Recovered/Resolved]
  - Asthenia [Not Recovered/Not Resolved]
  - Disorientation [Not Recovered/Not Resolved]
  - Skin atrophy [Unknown]
  - Vomiting [Unknown]
  - Wound [Unknown]
  - Erythema [Recovering/Resolving]
